FAERS Safety Report 14662580 (Version 3)
Quarter: 2018Q2

REPORT INFORMATION
  Report Type: Spontaneous
  Country: ES (occurrence: ES)
  Receive Date: 20180321
  Receipt Date: 20180504
  Transmission Date: 20180711
  Serious: Yes (Other)
  Sender: FDA-Public Use
  Company Number: ES-AMGEN-ESPSP2018035501

PATIENT
  Age: 70 Year
  Sex: Female
  Weight: 58 kg

DRUGS (3)
  1. 25-HYDROXYCHOLECALCIFEROL [Concomitant]
     Indication: OSTEOPOROSIS
     Dosage: 0.266 MG, QMO
     Dates: start: 2013
  2. VITAMIN D [Concomitant]
     Active Substance: CHOLECALCIFEROL
  3. PROLIA [Suspect]
     Active Substance: DENOSUMAB
     Indication: OSTEOPOROSIS
     Dosage: 60 MG, Q6MO
     Route: 058
     Dates: start: 20130215

REACTIONS (2)
  - Spinal compression fracture [Recovering/Resolving]
  - Vertebral wedging [Recovering/Resolving]

NARRATIVE: CASE EVENT DATE: 20180114
